FAERS Safety Report 4898646-X (Version None)
Quarter: 2006Q1

REPORT INFORMATION
  Report Type: 
  Country: None (occurrence: None)
  Receive Date: 20060202
  Receipt Date: 20060124
  Transmission Date: 20060701
  Serious: Yes (Other)
  Sender: FDA-Public Use
  Company Number: US-JNJFOC-20060101085

PATIENT
  Sex: Male

DRUGS (19)
  1. REMICADE [Suspect]
     Indication: CROHN'S DISEASE
     Route: 042
  2. IMURAN [Concomitant]
  3. SYNTHROID [Concomitant]
  4. QUESTRAN [Concomitant]
  5. PROSCAR [Concomitant]
  6. PENTASA [Concomitant]
  7. ENTOCORT [Concomitant]
  8. INH [Concomitant]
  9. ACCUPRIL [Concomitant]
  10. NORVASC [Concomitant]
  11. ALDACTAZIDE [Concomitant]
  12. ALDACTAZIDE [Concomitant]
  13. MYCARDIS [Concomitant]
  14. IRON SULFATETHIAMIN COMPOUND TAB [Concomitant]
  15. ROCALTROL [Concomitant]
  16. FOLIC ACID [Concomitant]
  17. ZEBETA [Concomitant]
  18. VITAMIN K [Concomitant]
  19. CITRACEL [Concomitant]

REACTIONS (3)
  - CONFUSIONAL STATE [None]
  - TUBERCULIN TEST POSITIVE [None]
  - TUBERCULOSIS [None]
